FAERS Safety Report 9325228 (Version 1)
Quarter: 2013Q2

REPORT INFORMATION
  Report Type: Report from Study
  Country: ID (occurrence: ID)
  Receive Date: 20130604
  Receipt Date: 20130604
  Transmission Date: 20140414
  Serious: Yes (Death)
  Sender: FDA-Public Use
  Company Number: ID-ROCHE-1231630

PATIENT
  Age: 41 Year
  Sex: Female

DRUGS (2)
  1. BONVIVA [Suspect]
     Indication: OSTEOPOROSIS
     Route: 048
  2. BONVIVA [Suspect]
     Dosage: 2ND DOSE, LAST DOSE PRIOR TO SAE 20/MAY/2013
     Route: 048
     Dates: start: 20130408

REACTIONS (1)
  - Death [Fatal]
